FAERS Safety Report 24034409 (Version 1)
Quarter: 2024Q3

REPORT INFORMATION
  Report Type: Spontaneous
  Country: US (occurrence: US)
  Receive Date: 20240701
  Receipt Date: 20240701
  Transmission Date: 20241017
  Serious: Yes (Life-Threatening, Hospitalization)
  Sender: ALEMBIC
  Company Number: US-MLMSERVICE-20240613-PI098869-00330-1

PATIENT

DRUGS (2)
  1. VENLAFAXINE [Suspect]
     Active Substance: VENLAFAXINE HYDROCHLORIDE
     Indication: Anxiety
     Dosage: VARIOUS DOSES OF VENLAFAXINE FOR APPROXIMATELY 10 YEARS.
     Route: 065
  2. SEMAGLUTIDE [Suspect]
     Active Substance: SEMAGLUTIDE
     Indication: Type 2 diabetes mellitus
     Dosage: UNK
     Route: 065

REACTIONS (5)
  - Hypertriglyceridaemia [Recovering/Resolving]
  - Hypophosphataemia [Unknown]
  - Pancreatitis acute [Unknown]
  - Hypocalcaemia [Unknown]
  - Hyponatraemia [Unknown]
